FAERS Safety Report 24902640 (Version 3)
Quarter: 2025Q1

REPORT INFORMATION
  Report Type: Spontaneous
  Country: HK (occurrence: HK)
  Receive Date: 20250130
  Receipt Date: 20250221
  Transmission Date: 20250409
  Serious: Yes (Other)
  Sender: BRISTOL-MYERS SQUIBB COMPANY
  Company Number: HK-BRISTOL-MYERS SQUIBB COMPANY-2025-013452

PATIENT

DRUGS (1)
  1. CAMZYOS [Suspect]
     Active Substance: MAVACAMTEN
     Indication: Hypertrophic cardiomyopathy

REACTIONS (1)
  - Atrial fibrillation [Unknown]
